FAERS Safety Report 9607229 (Version 1)
Quarter: 2013Q4

REPORT INFORMATION
  Report Type: Spontaneous
  Country: US (occurrence: US)
  Receive Date: 20131009
  Receipt Date: 20131009
  Transmission Date: 20140711
  Serious: No
  Sender: FDA-Public Use
  Company Number: US-009507513-1310USA000867

PATIENT
  Sex: 0

DRUGS (1)
  1. SAPHRIS [Suspect]
     Dosage: UNK
     Route: 048
     Dates: end: 2013

REACTIONS (3)
  - Ulcer [Unknown]
  - Blister [Unknown]
  - Irritability [Unknown]
